FAERS Safety Report 7389557-9 (Version None)
Quarter: 2011Q1

REPORT INFORMATION
  Report Type: 
  Country: None (occurrence: None)
  Receive Date: 20110325
  Receipt Date: 20110316
  Transmission Date: 20110831
  Serious: Yes (Other)
  Sender: FDA-Public Use
  Company Number: 027568

PATIENT
  Sex: Male

DRUGS (5)
  1. XYZAL [Suspect]
     Indication: PRURIGO
     Dosage: (5 MG QD ORAL)
     Route: 048
     Dates: start: 20110115, end: 20110121
  2. ZYRTEC [Concomitant]
  3. PREDNISOLONE [Concomitant]
  4. EBASTINE [Concomitant]
  5. ATARAX [Concomitant]

REACTIONS (3)
  - PRURIGO [None]
  - CONDITION AGGRAVATED [None]
  - DYSPNOEA [None]
